FAERS Safety Report 5423842-2 (Version None)
Quarter: 2007Q3

REPORT INFORMATION
  Report Type: 
  Country: None (occurrence: None)
  Receive Date: 20070727
  Receipt Date: 20070417
  Transmission Date: 20080115
  Serious: No
  Sender: FDA-Public Use
  Company Number: 262798

PATIENT
  Sex: Female

DRUGS (3)
  1. LEVEMIR [Suspect]
     Indication: INSULIN-REQUIRING TYPE II DIABETES MELLITUS
     Dosage: 20 IU, QD, SUBCUTANEOUS,10 IU,QD
     Route: 058
     Dates: start: 20070201
  2. METFORMIN HCL [Concomitant]
  3. GLIPIZIDE [Concomitant]

REACTIONS (1)
  - BLOOD GLUCOSE FLUCTUATION [None]
